FAERS Safety Report 19900184 (Version 3)
Quarter: 2021Q4

REPORT INFORMATION
  Report Type: Report from Study
  Country: US (occurrence: US)
  Receive Date: 20210929
  Receipt Date: 20211007
  Transmission Date: 20220303
  Serious: Yes (Death)
  Sender: FDA-Public Use
  Company Number: NVSC2021US220634

PATIENT
  Age: 65 Year
  Sex: Male

DRUGS (1)
  1. ENTRESTO [Suspect]
     Active Substance: SACUBITRIL\VALSARTAN
     Indication: Cardiac failure
     Dosage: 1 DF, QD
     Route: 048

REACTIONS (3)
  - Death [Fatal]
  - Inappropriate schedule of product administration [Unknown]
  - Underdose [Unknown]

NARRATIVE: CASE EVENT DATE: 20210925
